FAERS Safety Report 7492346-8 (Version None)
Quarter: 2011Q2

REPORT INFORMATION
  Report Type: 
  Country: None (occurrence: None)
  Receive Date: 20110519
  Receipt Date: 20110506
  Transmission Date: 20111010
  Serious: Yes (Hospitalization)
  Sender: FDA-Public Use
  Company Number: IT-PFIZER INC-IT-WYE-H18363810

PATIENT
  Age: 63 Year
  Sex: Female
  Weight: 63 kg

DRUGS (9)
  1. IRBESARTAN [Concomitant]
     Indication: HYPERTENSION
     Dosage: UNK
     Dates: start: 20000101
  2. LORAZEPAM [Concomitant]
     Indication: ANXIETY
     Dosage: UNK
     Dates: start: 20100810
  3. ASPIRIN [Concomitant]
     Indication: PROPHYLAXIS
     Dosage: UNK
     Dates: start: 20000101
  4. TRAZODONE HCL [Concomitant]
     Indication: DEPRESSION
     Dosage: UNK
     Dates: start: 20100810
  5. NEBIVOLOL [Concomitant]
     Indication: HYPERTENSION
     Dosage: UNK
     Dates: start: 20000101
  6. TEMSIROLIMUS [Suspect]
     Indication: METASTATIC RENAL CELL CARCINOMA
     Dosage: 25 MG,WEEKLY
     Route: 042
  7. BARNIDIPINE [Concomitant]
     Indication: HYPERTENSION
     Dosage: UNK
     Dates: start: 20100913
  8. FUROSEMIDE [Concomitant]
     Indication: HYPERTENSION
     Dosage: UNK
     Dates: start: 20000101
  9. BEVACIZUMAB [Suspect]
     Indication: METASTATIC RENAL CELL CARCINOMA
     Dosage: 10 MG/KG, CYCLIC, EVERY 2 WEEKS
     Route: 042
     Dates: start: 20100826, end: 20101025

REACTIONS (1)
  - NEPHROTIC SYNDROME [None]
